FAERS Safety Report 9723431 (Version 5)
Quarter: 2013Q4

REPORT INFORMATION
  Report Type: Spontaneous
  Country: IT (occurrence: IT)
  Receive Date: 20131202
  Receipt Date: 20131223
  Transmission Date: 20140711
  Serious: Yes (Hospitalization)
  Sender: FDA-Public Use
  Company Number: IT-PFIZER INC-2013342676

PATIENT
  Age: 50 Year
  Sex: Male

DRUGS (6)
  1. ALPRAZOLAM [Suspect]
     Dosage: 1 MG, 3X/DAY
     Route: 048
  2. ALPRAZOLAM [Suspect]
     Dosage: 14 DF, TOTAL
     Route: 048
     Dates: start: 20130823, end: 20130823
  3. EUTIMIL [Concomitant]
     Dosage: UNK
  4. COVERSYL [Concomitant]
     Dosage: 10 MG, UNK
  5. DILATREND [Concomitant]
     Dosage: 6.25 MG, UNK
     Route: 048
  6. OLANZAPINE [Concomitant]
     Dosage: 5 MG, UNK
     Route: 048

REACTIONS (4)
  - Suicide attempt [Unknown]
  - Fall [Unknown]
  - Presyncope [Unknown]
  - Drug abuse [Unknown]
